FAERS Safety Report 17004576 (Version 3)
Quarter: 2020Q1

REPORT INFORMATION
  Report Type: Report from Study
  Country: US (occurrence: US)
  Receive Date: 20191107
  Receipt Date: 20200103
  Transmission Date: 20200409
  Serious: Yes (Hospitalization, Other)
  Sender: FDA-Public Use
  Company Number: US-ASTELLAS-2019US004771

PATIENT
  Age: 82 Year
  Sex: Male

DRUGS (1)
  1. ENZALUTAMIDE [Suspect]
     Active Substance: ENZALUTAMIDE
     Indication: HORMONE-REFRACTORY PROSTATE CANCER
     Route: 048

REACTIONS (6)
  - Myocardial infarction [Unknown]
  - Paronychia [Unknown]
  - Peripheral artery thrombosis [Unknown]
  - Peripheral artery thrombosis [Unknown]
  - Cardiac failure congestive [Unknown]
  - Ulcer [Unknown]

NARRATIVE: CASE EVENT DATE: 20190812
